FAERS Safety Report 23616693 (Version 2)
Quarter: 2024Q1

REPORT INFORMATION
  Report Type: Spontaneous
  Country: US (occurrence: US)
  Receive Date: 20240311
  Receipt Date: 20240321
  Transmission Date: 20240409
  Serious: No
  Sender: FDA-Public Use
  Company Number: US-BRISTOL-MYERS SQUIBB COMPANY-2024-037655

PATIENT
  Age: 29 Year
  Sex: Male

DRUGS (4)
  1. ZEPOSIA [Interacting]
     Active Substance: OZANIMOD HYDROCHLORIDE
     Indication: Colitis ulcerative
     Route: 048
     Dates: start: 20240215
  2. SERTRALINE [Interacting]
     Active Substance: SERTRALINE HYDROCHLORIDE
     Indication: Product used for unknown indication
     Route: 048
     Dates: start: 20230810
  3. XANAX [Concomitant]
     Active Substance: ALPRAZOLAM
     Indication: Anxiety
     Dosage: SIG - ROUTE: TAKE 1 TABLET (0.5 MG TOTAL) BY MOUTH 2 (TWO) TIMES DAILY AS NEEDED FOR ANXIETY ORAL
     Route: 048
     Dates: start: 20220615
  4. LIALDA [Concomitant]
     Active Substance: MESALAMINE
     Indication: Product used for unknown indication
     Dosage: SIG - ROUTE: TAKE 4 TABLETS (4.8 G TOTAL) BY MOUTH EVERY DAY WITH A MEAL - ORAL
     Route: 048
     Dates: start: 20240208

REACTIONS (3)
  - Heart rate decreased [Unknown]
  - Palpitations [Unknown]
  - Drug interaction [Unknown]
